FAERS Safety Report 13352017 (Version 1)
Quarter: 2017Q1

REPORT INFORMATION
  Report Type: Spontaneous
  Country: US (occurrence: US)
  Receive Date: 20170320
  Receipt Date: 20170320
  Transmission Date: 20170429
  Serious: No
  Sender: FDA-Public Use
  Company Number: US-SA-2016SA064188

PATIENT
  Age: 66 Year
  Sex: Male
  Weight: 100.68 kg

DRUGS (1)
  1. NASACORT ALLERGY 24HR [Suspect]
     Active Substance: TRIAMCINOLONE ACETONIDE
     Indication: RHINORRHOEA
     Dosage: TOTAL OF 2 BOTTLE (120 SPRAY COUNT EACH).?1-2 SPARY FIRST WEEK AND 1 PER DAY
     Route: 055
     Dates: start: 201602, end: 20160203

REACTIONS (2)
  - Drug ineffective [Unknown]
  - Burning sensation [Unknown]

NARRATIVE: CASE EVENT DATE: 20160202
